FAERS Safety Report 6456266-X (Version None)
Quarter: 2009Q4

REPORT INFORMATION
  Report Type: 
  Country: None (occurrence: None)
  Receive Date: 20091125
  Receipt Date: 20091113
  Transmission Date: 20100525
  Serious: Yes (Hospitalization, Other)
  Sender: FDA-Public Use
  Company Number: US-ELI_LILLY_AND_COMPANY-US200911005469

PATIENT
  Sex: Female

DRUGS (2)
  1. FORTEO [Suspect]
     Dosage: UNK, UNK
     Dates: start: 20080101, end: 20090301
  2. FORTEO [Suspect]
     Dosage: UNK, UNK
     Dates: start: 20090101

REACTIONS (3)
  - COLOSTOMY [None]
  - GASTROINTESTINAL NECROSIS [None]
  - HERNIA [None]
